FAERS Safety Report 6846655-3 (Version None)
Quarter: 2010Q3

REPORT INFORMATION
  Report Type: 
  Country: None (occurrence: None)
  Receive Date: 20100715
  Receipt Date: 20071025
  Transmission Date: 20110219
  Serious: Yes (Other)
  Sender: FDA-Public Use
  Company Number: US-PFIZER INC-2007079103

PATIENT
  Sex: Female

DRUGS (1)
  1. CHANTIX [Suspect]
     Indication: SMOKING CESSATION THERAPY

REACTIONS (5)
  - DEPRESSION [None]
  - DIZZINESS [None]
  - NAUSEA [None]
  - NIGHTMARE [None]
  - SUICIDAL IDEATION [None]
